FAERS Safety Report 20542659 (Version 2)
Quarter: 2022Q1

REPORT INFORMATION
  Report Type: Spontaneous
  Country: US (occurrence: US)
  Receive Date: 20220302
  Receipt Date: 20220314
  Transmission Date: 20220423
  Serious: No
  Sender: FDA-Public Use
  Company Number: US-TEVA-2022-US-2011330

PATIENT
  Sex: Female

DRUGS (1)
  1. AJOVY [Suspect]
     Active Substance: FREMANEZUMAB-VFRM
     Indication: Migraine
     Route: 065
     Dates: start: 202105

REACTIONS (6)
  - Peripheral swelling [Unknown]
  - Nervousness [Unknown]
  - Dyskinesia [Unknown]
  - Accidental exposure to product [Unknown]
  - Device leakage [Unknown]
  - Fear of injection [Unknown]
